FAERS Safety Report 19438816 (Version 1)
Quarter: 2021Q2

REPORT INFORMATION
  Report Type: Spontaneous
  Country: RU (occurrence: RU)
  Receive Date: 20210618
  Receipt Date: 20210618
  Transmission Date: 20210717
  Serious: Yes (Other)
  Sender: FDA-Public Use
  Company Number: RU-JNJFOC-20210638639

PATIENT
  Age: 48 Year

DRUGS (1)
  1. VENTAVIS [Suspect]
     Active Substance: ILOPROST
     Indication: PULMONARY ENDARTERECTOMY
     Dosage: UNK UNK, Q3HR, FOR 3 WEEKS EVERY 3 HOURS OF VENTAVIS
     Route: 055

REACTIONS (1)
  - Off label use [Unknown]
